FAERS Safety Report 15347365 (Version 3)
Quarter: 2019Q4

REPORT INFORMATION
  Report Type: Spontaneous
  Country: US (occurrence: US)
  Receive Date: 20180904
  Receipt Date: 20191023
  Transmission Date: 20200122
  Serious: Yes (Hospitalization)
  Sender: FDA-Public Use
  Company Number: US-PFIZER INC-2018354489

PATIENT
  Age: 67 Year
  Sex: Female
  Weight: 94 kg

DRUGS (2)
  1. IBRANCE [Suspect]
     Active Substance: PALBOCICLIB
     Indication: BREAST CANCER METASTATIC
     Dosage: 125 MG, CYCLIC (DAYS 1-21 Q28 DAYS; DAILY X 21 DAYS THEN 7 DAYS OFF)
     Route: 048
     Dates: start: 201806
  2. IBRANCE [Suspect]
     Active Substance: PALBOCICLIB
     Dosage: 125 MG, CYCLIC (21 DAY ON, 7 DAY OFF)
     Route: 048
     Dates: start: 20180831

REACTIONS (7)
  - Blood creatinine increased [Recovered/Resolved]
  - Therapeutic response unexpected [Unknown]
  - Dry eye [Unknown]
  - Diarrhoea [Unknown]
  - Dry mouth [Unknown]
  - Vision blurred [Unknown]
  - Pre-existing condition improved [Unknown]

NARRATIVE: CASE EVENT DATE: 2018
